FAERS Safety Report 25436128 (Version 1)
Quarter: 2025Q2

REPORT INFORMATION
  Report Type: Spontaneous
  Country: US (occurrence: US)
  Receive Date: 20250614
  Receipt Date: 20250614
  Transmission Date: 20250717
  Serious: No
  Sender: SANOFI AVENTIS
  Company Number: US-SA-2025SA168355

PATIENT
  Sex: Female

DRUGS (8)
  1. DUPIXENT [Suspect]
     Active Substance: DUPILUMAB
     Indication: Eosinophilic oesophagitis
     Dosage: 300 MG, QW
     Route: 058
  2. CLARITIN [Concomitant]
     Active Substance: LORATADINE
  3. ESTRADIOL [Concomitant]
     Active Substance: ESTRADIOL
  4. FELODIPINE [Concomitant]
     Active Substance: FELODIPINE
  5. GABAPENTIN [Concomitant]
     Active Substance: GABAPENTIN
  6. OMEPRAZOLE [Concomitant]
     Active Substance: OMEPRAZOLE
  7. PHENERGAN [Concomitant]
     Active Substance: PROMETHAZINE HYDROCHLORIDE
  8. TRAMADOL HCL [Concomitant]
     Active Substance: TRAMADOL HYDROCHLORIDE

REACTIONS (3)
  - Impaired quality of life [Unknown]
  - Pain in extremity [Unknown]
  - Limb discomfort [Unknown]
